FAERS Safety Report 21408946 (Version 9)
Quarter: 2022Q4

REPORT INFORMATION
  Report Type: Report from Study
  Country: BE (occurrence: BE)
  Receive Date: 20221004
  Receipt Date: 20221115
  Transmission Date: 20230112
  Serious: Yes (Hospitalization)
  Sender: FDA-Public Use
  Company Number: BE-ABBVIE-4139135

PATIENT
  Sex: Male
  Weight: 61 kg

DRUGS (26)
  1. CARBIDOPA\LEVODOPA [Suspect]
     Active Substance: CARBIDOPA\LEVODOPA
     Indication: Parkinson^s disease
     Dosage: MD: 5.5 ML, CD: 2.7 ML/H, ED: 2.2 ML, CND: 2.7 ML/HR; REMAINS AT 24 HOURS
     Route: 050
     Dates: start: 20220505, end: 20220922
  2. CARBIDOPA\LEVODOPA [Suspect]
     Active Substance: CARBIDOPA\LEVODOPA
     Route: 050
     Dates: start: 20180115
  3. CARBIDOPA\LEVODOPA [Suspect]
     Active Substance: CARBIDOPA\LEVODOPA
     Dosage: MD: 5.5 ML, CD: 2.9 ML/H, ED: 2.2 ML, CND: 2.7 ML/HR; REMAINS AT 16 HOURS
     Route: 050
     Dates: start: 20220922, end: 20221005
  4. CARBIDOPA\LEVODOPA [Suspect]
     Active Substance: CARBIDOPA\LEVODOPA
     Dosage: MD: 5.5 ML, CD: 3.1 ML/H, ED: 2.2 ML, CND: 3.1 ML/HR; REMAINS AT 24 HOURS
     Route: 050
     Dates: start: 20221005, end: 20221011
  5. CARBIDOPA\LEVODOPA [Suspect]
     Active Substance: CARBIDOPA\LEVODOPA
     Dosage: MD: 6.5 ML, CD: 3.3 ML/H, ED: 2.2 ML, CND: 3.0 ML/HR; REMAINS AT 24 HOURS
     Route: 050
     Dates: start: 20221011, end: 20221014
  6. CARBIDOPA\LEVODOPA [Suspect]
     Active Substance: CARBIDOPA\LEVODOPA
     Dosage: MD: 7.5 ML, CD: 4.0 ML/H, ED: 3.0 ML, CND: 3.0 ML/HR; REMAINS AT 16 HOURS
     Route: 050
     Dates: start: 20221014, end: 202210
  7. CARBIDOPA\LEVODOPA [Suspect]
     Active Substance: CARBIDOPA\LEVODOPA
     Dosage: ED: 2.0 ML
     Route: 050
     Dates: start: 202210, end: 202210
  8. CARBIDOPA\LEVODOPA [Suspect]
     Active Substance: CARBIDOPA\LEVODOPA
     Dosage: CD: 4.7 ML/HR, ED: 3.0 ML, CND: 3.0 ML/HR
     Route: 050
     Dates: start: 202210, end: 20221026
  9. CARBIDOPA\LEVODOPA [Suspect]
     Active Substance: CARBIDOPA\LEVODOPA
     Dosage: MD: 6.5 ML, CD: 4.7 ML/H, ED: 3.0 ML, CND: 3.0 ML/HR; REMAINS AT 24 HOURS
     Route: 050
     Dates: start: 20221026
  10. STALEVO [Concomitant]
     Active Substance: CARBIDOPA\ENTACAPONE\LEVODOPA
     Indication: Product used for unknown indication
     Dosage: FORM STRENGTH: 100 WITH UNKNOWN UNIT?AT 21:00 HRS
     Route: 065
  11. STALEVO [Concomitant]
     Active Substance: CARBIDOPA\ENTACAPONE\LEVODOPA
     Indication: Product used for unknown indication
     Dosage: TIME INTERVAL: 0.33333333 DAYS
  12. XADAGO [Concomitant]
     Active Substance: SAFINAMIDE MESYLATE
     Indication: Product used for unknown indication
     Dosage: FORM STRENGTH: 50 MILLIGRAM?FORM STRENGTH: 100 UNIT: UNKNOWN
     Route: 065
  13. Prolopa dispersible [Concomitant]
     Indication: Product used for unknown indication
     Dosage: 12 TABLETS IN 500 ML WATER DURING 20 HOURS, EVERY 30 MINUTES
     Route: 065
  14. PRAMIPEXOLE [Concomitant]
     Active Substance: PRAMIPEXOLE
     Indication: Product used for unknown indication
     Dosage: FORM STRENGTH: 0.26 MILLIGRAM?IN THE MORNING AND IN THE AFTERNOON
     Route: 065
  15. PRAMIPEXOLE [Concomitant]
     Active Substance: PRAMIPEXOLE
     Indication: Product used for unknown indication
     Dosage: FORM STRENGTH: 0.26 MILLIGRAM?IN THE EVENING
     Route: 065
  16. RIVOTRIL [Concomitant]
     Active Substance: CLONAZEPAM
     Indication: Product used for unknown indication
     Dosage: 0.5 MG?FREQUENCY TEXT: AT 20:00 HRS
     Route: 065
  17. Uri-cran [Concomitant]
     Indication: Product used for unknown indication
     Dosage: FREQUENCY TEXT: AT 20:00 HRS
  18. XARELTO [Concomitant]
     Active Substance: RIVAROXABAN
     Indication: Product used for unknown indication
     Dosage: FORM STRENGTH: 20 MILLIGRAM?FREQUENCY TEXT: AT 08:00 HRS
  19. SILODOSIN [Concomitant]
     Active Substance: SILODOSIN
     Indication: Product used for unknown indication
     Dosage: FORM STRENGTH: 8 MILLIGRAM?FREQUENCY TEXT: AT 20:00 HRS
  20. MOVICOL [Concomitant]
     Active Substance: POLYETHYLENE GLYCOL 3350\POTASSIUM CHLORIDE\SODIUM BICARBONATE\SODIUM CHLORIDE
     Indication: Product used for unknown indication
     Dosage: FREQUENCY TEXT: AT 08:00 HRS
  21. IBUPROFEN [Concomitant]
     Active Substance: IBUPROFEN
     Indication: Product used for unknown indication
     Dosage: FORM STRENGTH: 400 MILLIGRAM?FREQUENCY TEXT: ONCE A DAY AS REQUIRED
  22. COMTAN [Concomitant]
     Active Substance: ENTACAPONE
     Indication: Product used for unknown indication
     Dosage: FORM STRENGTH: 200 MILLIGRAM?FREQUENCY TEXT: AT 08:00, 12:00, 16:00 AND 20:00 HRS
  23. CHOLECALCIFEROL [Concomitant]
     Active Substance: CHOLECALCIFEROL
     Indication: Product used for unknown indication
     Dosage: FREQUENCY TEXT: EVERY WEDNESDAY, ONCE A WEEK
  24. B12 Pura [Concomitant]
     Indication: Product used for unknown indication
     Dosage: FREQUENCY TEXT: AT 12:00 HRS
  25. CLOZAPINE [Concomitant]
     Active Substance: CLOZAPINE
     Indication: Product used for unknown indication
     Dosage: 0.25 TABLET?FORM STRENGTH: 25 MILLIGRAM?FREQUENCY TEXT: AT 22:00 HRS, IF NEEDED REPEAT ONE TIME
  26. REMERGON [Concomitant]
     Active Substance: MIRTAZAPINE
     Indication: Product used for unknown indication
     Dosage: 0.5 TABLET?FORM STRENGTH: 15 MILLIGRAM?FREQUENCY TEXT: AT 22:00 HRS

REACTIONS (16)
  - General physical health deterioration [Unknown]
  - Intentional product misuse [Unknown]
  - Therapeutic product effect incomplete [Unknown]
  - Muscle rigidity [Not Recovered/Not Resolved]
  - Laboratory test abnormal [Unknown]
  - Underdose [Unknown]
  - On and off phenomenon [Not Recovered/Not Resolved]
  - Fluid intake reduced [Unknown]
  - Dysphagia [Unknown]
  - Hypophagia [Unknown]
  - Weight decreased [Unknown]
  - Tremor [Unknown]
  - General physical health deterioration [Unknown]
  - Bradykinesia [Unknown]
  - Intentional product misuse [Unknown]
  - Dyskinesia [Recovered/Resolved]

NARRATIVE: CASE EVENT DATE: 20220101
